FAERS Safety Report 19838123 (Version 2)
Quarter: 2022Q4

REPORT INFORMATION
  Report Type: Spontaneous
  Country: DE (occurrence: DE)
  Receive Date: 20210916
  Receipt Date: 20221101
  Transmission Date: 20230112
  Serious: Yes (Hospitalization)
  Sender: FDA-Public Use
  Company Number: DE-ADRED-06590-04

PATIENT
  Age: 63 Year
  Sex: Male
  Weight: 95 kg

DRUGS (11)
  1. CARBOPLATIN [Suspect]
     Active Substance: CARBOPLATIN
     Indication: Product used for unknown indication
     Dosage: 311.1 MG, ACCORDING TO THE SCHEME,
     Route: 042
  2. GEMCITABINE [Suspect]
     Active Substance: GEMCITABINE
     Indication: Product used for unknown indication
     Dosage: 2472 MG, ACCORDING TO THE SCHEME,
     Route: 042
  3. CALCITRIOL [Concomitant]
     Active Substance: CALCITRIOL
     Indication: Product used for unknown indication
     Dosage: 2 DOSAGE FORMS DAILY; 0.25 MCG, 2-0-0-0,
     Route: 048
  4. Semaglutid [Concomitant]
     Indication: Product used for unknown indication
     Dosage: 2 MG, ACCORDING TO THE SCHEME, PRE-FILLED SYRINGES
     Route: 058
  5. Ispaghula (Flohsamen) [Concomitant]
     Indication: Product used for unknown indication
     Dosage: 6.5 GRAM DAILY;   1-0-1-0, GSE
     Route: 048
  6. PANTOPRAZOLE SODIUM [Concomitant]
     Active Substance: PANTOPRAZOLE SODIUM
     Indication: Product used for unknown indication
     Dosage: 40 MILLIGRAM DAILY;  1-0-0-0
     Route: 048
  7. LOPERAMIDE [Concomitant]
     Active Substance: LOPERAMIDE
     Indication: Product used for unknown indication
     Dosage: 6 DOSAGE FORMS DAILY; 2 MG, 2-2-2-0
     Route: 048
  8. ASPIRIN [Concomitant]
     Active Substance: ASPIRIN
     Indication: Product used for unknown indication
     Dosage: 100 MILLIGRAM DAILY;  1-0-0-0
     Route: 048
  9. DALTEPARIN [Concomitant]
     Active Substance: DALTEPARIN
     Indication: Product used for unknown indication
     Dosage: 5000 IU (INTERNATIONAL UNIT) DAILY; 5000 IU, 0-0-1-0, PRE-FILLED SYRINGES
     Route: 058
  10. PREGABALIN [Concomitant]
     Active Substance: PREGABALIN
     Indication: Product used for unknown indication
     Dosage: 150 MILLIGRAM DAILY; 0-0-1-0
     Route: 048
  11. TORSEMIDE [Concomitant]
     Active Substance: TORSEMIDE
     Indication: Product used for unknown indication
     Dosage: 2 DOSAGE FORMS DAILY; 10 MG, 2-0-0-0,
     Route: 048

REACTIONS (4)
  - Chills [Unknown]
  - Pain [Unknown]
  - Pyrexia [Unknown]
  - Urosepsis [Unknown]
